FAERS Safety Report 13900209 (Version 2)
Quarter: 2017Q3

REPORT INFORMATION
  Report Type: Report from Study
  Country: PA (occurrence: PA)
  Receive Date: 20170824
  Receipt Date: 20170901
  Transmission Date: 20171127
  Serious: Yes (Life-Threatening, Other)
  Sender: FDA-Public Use
  Company Number: PHHY2017PA107366

PATIENT
  Age: 35 Year
  Sex: Female
  Weight: 102 kg

DRUGS (2)
  1. AFINITOR [Suspect]
     Active Substance: EVEROLIMUS
     Indication: BREAST CANCER
     Dosage: 10 MG, DAILY
     Route: 048
     Dates: start: 20170511, end: 20170811
  2. EXEMESTANE. [Concomitant]
     Active Substance: EXEMESTANE
     Indication: PRODUCT USED FOR UNKNOWN INDICATION
     Dosage: 25 MG, DAILY
     Route: 048

REACTIONS (26)
  - Limb mass [Unknown]
  - Spinal osteoarthritis [Unknown]
  - Back pain [Unknown]
  - Blood alkaline phosphatase increased [Unknown]
  - Headache [Recovered/Resolved]
  - Glossodynia [Unknown]
  - Cough [Not Recovered/Not Resolved]
  - Neoplasm skin [Recovering/Resolving]
  - Hepatitis [Recovering/Resolving]
  - Arthralgia [Unknown]
  - Alanine aminotransferase increased [Unknown]
  - Ulcer [Not Recovered/Not Resolved]
  - Asthenia [Unknown]
  - Haemoglobin decreased [Not Recovered/Not Resolved]
  - Lymphocyte count abnormal [Unknown]
  - Visual impairment [Unknown]
  - Spinal pain [Unknown]
  - Lymphadenopathy [Recovering/Resolving]
  - Mobility decreased [Unknown]
  - Dyspnoea [Unknown]
  - Stomatitis [Recovered/Resolved]
  - Liver disorder [Unknown]
  - Blood lactate dehydrogenase increased [Unknown]
  - Chest discomfort [Unknown]
  - Blood cholesterol increased [Unknown]
  - Pneumonitis [Unknown]

NARRATIVE: CASE EVENT DATE: 20170811
